FAERS Safety Report 25888253 (Version 1)
Quarter: 2025Q4

REPORT INFORMATION
  Report Type: Spontaneous
  Country: US (occurrence: US)
  Receive Date: 20251007
  Receipt Date: 20251007
  Transmission Date: 20260117
  Serious: Yes (Hospitalization, Other)
  Sender: STRIDES
  Company Number: US-STRIDES PHARMA UK LTD.-2025SP005071

PATIENT
  Age: 66 Year
  Sex: Male

DRUGS (9)
  1. PREDNISOLONE [Suspect]
     Active Substance: PREDNISOLONE
     Indication: Product used for unknown indication
     Dosage: 80 MILLIGRAM, QD
     Route: 048
  2. PREDNISOLONE [Suspect]
     Active Substance: PREDNISOLONE
     Dosage: 100 MILLIGRAM, QD
     Route: 048
  3. PREDNISOLONE [Suspect]
     Active Substance: PREDNISOLONE
     Dosage: 40 MILLIGRAM
     Route: 065
  4. LOPERAMIDE [Suspect]
     Active Substance: LOPERAMIDE
     Indication: Immune-mediated enterocolitis
     Dosage: UNK
     Route: 065
  5. METHYLPREDNISOLONE [Suspect]
     Active Substance: METHYLPREDNISOLONE
     Indication: Immune-mediated enterocolitis
     Dosage: 1 MILLIGRAM/KILOGRAM, QD
     Route: 042
  6. Ipilimumab;Nivolumab [Concomitant]
     Indication: Metastatic malignant melanoma
     Dosage: 2 CYCLES
     Route: 065
  7. NIVOLUMAB [Concomitant]
     Active Substance: NIVOLUMAB
     Indication: Metastatic malignant melanoma
     Dosage: UNK
     Route: 065
  8. ATROPINE\DIPHENOXYLATE [Concomitant]
     Active Substance: ATROPINE\DIPHENOXYLATE
     Indication: Immune-mediated enterocolitis
     Dosage: UNK
     Route: 065
  9. INFLIXIMAB [Concomitant]
     Active Substance: INFLIXIMAB
     Indication: Immune-mediated enterocolitis
     Dosage: UNK
     Route: 065

REACTIONS (3)
  - Yersinia infection [Recovering/Resolving]
  - Cytomegalovirus colitis [Unknown]
  - Off label use [Unknown]
